FAERS Safety Report 4744917-7 (Version None)
Quarter: 2005Q3

REPORT INFORMATION
  Report Type: 
  Country: None (occurrence: None)
  Receive Date: 20050810
  Receipt Date: 20050810
  Transmission Date: 20060218
  Serious: Yes (Other)
  Sender: FDA-Public Use
  Company Number: None

PATIENT
  Age: 75 Year
  Sex: Male
  Weight: 92 kg

DRUGS (8)
  1. ZOSYN [Suspect]
     Indication: SEPSIS
     Dosage: 4.5 GRAMS DAILY INTRAVENOU
     Route: 042
     Dates: start: 20040518, end: 20050526
  2. ACETYLOCYSTEINE [Concomitant]
  3. AZITHROMYCIN [Concomitant]
  4. PHOSLO [Concomitant]
  5. BUMEX [Concomitant]
  6. LASIX [Concomitant]
  7. LORAZEPAM [Concomitant]
  8. VANCOMYCIN [Concomitant]

REACTIONS (3)
  - EOSINOPHILIA [None]
  - RASH [None]
  - THROMBOCYTOPENIA [None]
